FAERS Safety Report 6119555-4 (Version None)
Quarter: 2009Q1

REPORT INFORMATION
  Report Type: 
  Country: None (occurrence: None)
  Receive Date: 20090316
  Receipt Date: 20090306
  Transmission Date: 20090719
  Serious: Yes (Life-Threatening, Other)
  Sender: FDA-Public Use
  Company Number: B0559539A

PATIENT
  Age: 46 Year
  Sex: Female
  Weight: 65.9 kg

DRUGS (4)
  1. TYVERB [Suspect]
     Dosage: 250MG FIVE TIMES PER DAY
     Route: 048
     Dates: start: 20081204, end: 20090115
  2. XELODA [Concomitant]
     Dosage: 3500MG PER DAY
     Route: 048
     Dates: start: 20081204, end: 20090107
  3. MEDROL [Concomitant]
     Dosage: 16MG PER DAY
     Route: 065
  4. ZOMETA [Concomitant]
     Route: 042

REACTIONS (5)
  - DEEP VEIN THROMBOSIS [None]
  - HEPATIC FUNCTION ABNORMAL [None]
  - OEDEMA PERIPHERAL [None]
  - PULMONARY EMBOLISM [None]
  - PULMONARY OEDEMA [None]
